FAERS Safety Report 14642376 (Version 3)
Quarter: 2018Q2

REPORT INFORMATION
  Report Type: Spontaneous
  Country: JP (occurrence: JP)
  Receive Date: 20180315
  Receipt Date: 20180423
  Transmission Date: 20180711
  Serious: Yes (Life-Threatening, Hospitalization, Other)
  Sender: FDA-Public Use
  Company Number: JP-PFIZER INC-2018100463

PATIENT
  Age: 71 Year
  Sex: Female

DRUGS (2)
  1. HYALURONIC ACID [Concomitant]
     Active Substance: HYALURONIC ACID
     Indication: OSTEOARTHRITIS
     Dosage: UNK
     Route: 014
  2. METHOTREXATE SODIUM. [Suspect]
     Active Substance: METHOTREXATE SODIUM
     Indication: RHEUMATOID ARTHRITIS
     Dosage: 8 MG, WEEKLY (FOR A LONG TIME)

REACTIONS (6)
  - Extradural abscess [Recovering/Resolving]
  - Skin infection [Recovering/Resolving]
  - Septic arthritis staphylococcal [Recovering/Resolving]
  - Staphylococcal scalded skin syndrome [Recovering/Resolving]
  - Intervertebral discitis [Recovering/Resolving]
  - Acute kidney injury [Recovered/Resolved]
